FAERS Safety Report 8615134-5 (Version None)
Quarter: 2012Q3

REPORT INFORMATION
  Report Type: 
  Country: None (occurrence: None)
  Receive Date: 20120823
  Receipt Date: 20120816
  Transmission Date: 20120928
  Serious: No
  Sender: FDA-Public Use
  Company Number: US-BAYER-2012-085467

PATIENT

DRUGS (3)
  1. ALEVE (CAPLET) [Suspect]
     Indication: JOINT INJURY
     Route: 048
  2. ALEVE (CAPLET) [Suspect]
     Indication: SUNBURN
  3. ALEVE (CAPLET) [Suspect]
     Indication: HEADACHE

REACTIONS (1)
  - DRUG INEFFECTIVE [None]
